FAERS Safety Report 17440850 (Version 2)
Quarter: 2020Q1

REPORT INFORMATION
  Report Type: Report from Study
  Country: CA (occurrence: CA)
  Receive Date: 20200220
  Receipt Date: 20200313
  Transmission Date: 20200409
  Serious: Yes (Hospitalization, Other)
  Sender: FDA-Public Use
  Company Number: PHHY2019CA198230

PATIENT
  Age: 23 Year
  Sex: Female

DRUGS (7)
  1. ERELZI [Suspect]
     Active Substance: ETANERCEPT-SZZS
     Indication: JUVENILE IDIOPATHIC ARTHRITIS
     Dosage: 50 MG, QW
     Route: 058
     Dates: start: 20190726
  2. METHOTREXATE. [Concomitant]
     Active Substance: METHOTREXATE
     Indication: PRODUCT USED FOR UNKNOWN INDICATION
     Dosage: UNK UNK, QW
     Route: 058
  3. CELEBREX [Concomitant]
     Active Substance: CELECOXIB
     Indication: PRODUCT USED FOR UNKNOWN INDICATION
     Dosage: UNK
     Route: 065
  4. HYDROXYCHLOROQUINE [Concomitant]
     Active Substance: HYDROXYCHLOROQUINE
     Indication: PRODUCT USED FOR UNKNOWN INDICATION
     Dosage: UNK
     Route: 065
  5. SULFASALAZINE. [Concomitant]
     Active Substance: SULFASALAZINE
     Indication: PRODUCT USED FOR UNKNOWN INDICATION
     Dosage: UNK
     Route: 065
  6. ERELZI [Suspect]
     Active Substance: ETANERCEPT-SZZS
     Dosage: 50 MG, QW
     Route: 058
     Dates: start: 20191004
  7. ERELZI [Suspect]
     Active Substance: ETANERCEPT-SZZS
     Dosage: 50 MG, QW
     Route: 058
     Dates: start: 20200207

REACTIONS (13)
  - Nasal congestion [Recovering/Resolving]
  - Vomiting [Recovered/Resolved]
  - Sinusitis [Unknown]
  - Juvenile idiopathic arthritis [Unknown]
  - Injection site pain [Recovering/Resolving]
  - Injection site rash [Recovering/Resolving]
  - Cough [Recovering/Resolving]
  - Injection site swelling [Recovering/Resolving]
  - Pyrexia [Recovering/Resolving]
  - Ovarian cyst [Unknown]
  - Immune system disorder [Unknown]
  - Nasopharyngitis [Unknown]
  - Influenza [Unknown]

NARRATIVE: CASE EVENT DATE: 20190726
